FAERS Safety Report 23818168 (Version 1)
Quarter: 2024Q2

REPORT INFORMATION
  Report Type: Spontaneous
  Country: US (occurrence: US)
  Receive Date: 20240506
  Receipt Date: 20240506
  Transmission Date: 20240716
  Serious: No
  Sender: FDA-Public Use
  Company Number: US-UCBSA-2023038503

PATIENT
  Sex: Male

DRUGS (1)
  1. CIMZIA [Suspect]
     Active Substance: CERTOLIZUMAB PEGOL
     Indication: Product used for unknown indication
     Dosage: 400 MILLIGRAM, OTHER
     Route: 058

REACTIONS (7)
  - Skin discolouration [Unknown]
  - Skin exfoliation [Unknown]
  - Fatigue [Unknown]
  - Dizziness [Unknown]
  - Abdominal pain [Unknown]
  - Night sweats [Unknown]
  - Chills [Unknown]
